FAERS Safety Report 10389573 (Version 1)
Quarter: 2014Q3

REPORT INFORMATION
  Report Type: Spontaneous
  Country: CZ (occurrence: CZ)
  Receive Date: 20140818
  Receipt Date: 20140818
  Transmission Date: 20150326
  Serious: Yes (Hospitalization, Other)
  Sender: FDA-Public Use
  Company Number: CZ-B.I. PHARMACEUTICALS,INC./RIDGEFIELD-2014-BI-36443CZ

PATIENT
  Age: 78 Year
  Sex: Female

DRUGS (13)
  1. LOKREN [Concomitant]
     Active Substance: BETAXOLOL HYDROCHLORIDE
     Dosage: 10 MG
     Route: 048
  2. WARFARIN [Concomitant]
     Active Substance: WARFARIN
     Indication: ATRIAL FIBRILLATION
  3. KCL [Concomitant]
     Active Substance: POTASSIUM CHLORIDE
     Dosage: 500 MG
     Route: 048
  4. PRADAXA [Suspect]
     Active Substance: DABIGATRAN ETEXILATE MESYLATE
     Indication: ATRIAL FIBRILLATION
  5. PRESTARIUM NEO [Concomitant]
     Dosage: UNIT: UNKNOWN
     Route: 048
  6. LATROX [Concomitant]
     Dosage: 50 MCG
     Route: 048
  7. WARFARIN [Concomitant]
     Active Substance: WARFARIN
     Indication: CEREBROVASCULAR ACCIDENT PROPHYLAXIS
     Route: 048
  8. INDAP [Concomitant]
     Dosage: UNIT: UNKNOWN
     Route: 048
  9. AC.FOLICUM [Concomitant]
     Dosage: UNIT: UNKNOWN
     Route: 048
  10. DETRALEX TBL [Concomitant]
     Dosage: UNIT: UNKNOWN
     Route: 048
  11. PRADAXA [Suspect]
     Active Substance: DABIGATRAN ETEXILATE MESYLATE
     Indication: CEREBROVASCULAR ACCIDENT PROPHYLAXIS
     Dosage: 300 MG
     Route: 048
     Dates: start: 20130304
  12. LACIPIL [Concomitant]
     Active Substance: LACIDIPINE
     Dosage: 2 MG
     Route: 048
  13. ZALDIAR [Concomitant]
     Active Substance: ACETAMINOPHEN\TRAMADOL HYDROCHLORIDE
     Dosage: UNIT: UNKNOWN
     Route: 048

REACTIONS (2)
  - Cerebrovascular accident [Recovered/Resolved]
  - Aphasia [Recovered/Resolved]

NARRATIVE: CASE EVENT DATE: 20140423
